FAERS Safety Report 4899226-2 (Version None)
Quarter: 2006Q1

REPORT INFORMATION
  Report Type: 
  Country: None (occurrence: None)
  Receive Date: 20060202
  Receipt Date: 20060124
  Transmission Date: 20060701
  Serious: Yes (Hospitalization)
  Sender: FDA-Public Use
  Company Number: GB-ROCHE-433914

PATIENT
  Age: 39 Year
  Sex: Male

DRUGS (6)
  1. RIBAVIRIN [Suspect]
     Indication: DRUG USE FOR UNKNOWN INDICATION
     Route: 065
     Dates: start: 20050615, end: 20050815
  2. ZAPONEX [Interacting]
     Indication: DRUG USE FOR UNKNOWN INDICATION
     Route: 048
     Dates: start: 20041103, end: 20050721
  3. ZAPONEX [Interacting]
     Route: 048
     Dates: start: 20030424, end: 20041102
  4. AMISULPRIDE [Concomitant]
     Route: 065
  5. NOVOMIX [Concomitant]
     Route: 065
  6. PEGASYS [Concomitant]
     Dates: start: 20050615, end: 20050815

REACTIONS (4)
  - DRUG INTERACTION [None]
  - HEPATITIS CHRONIC ACTIVE [None]
  - NEUTROPENIA [None]
  - WHITE BLOOD CELL COUNT DECREASED [None]
